FAERS Safety Report 26046159 (Version 1)
Quarter: 2025Q4

REPORT INFORMATION
  Report Type: Spontaneous
  Country: US (occurrence: US)
  Receive Date: 20251114
  Receipt Date: 20251114
  Transmission Date: 20260117
  Serious: No
  Sender: OPTINOSE INC
  Company Number: US-OptiNose US, Inc-2024OPT000171

PATIENT
  Sex: Female

DRUGS (2)
  1. XHANCE [Suspect]
     Active Substance: FLUTICASONE PROPIONATE
     Indication: Off label use
     Dosage: 186 MICROGRAM, BID
     Route: 045
     Dates: start: 20241206
  2. DEVICE [Suspect]
     Active Substance: DEVICE
     Indication: Off label use
     Dosage: UNK UNK

REACTIONS (6)
  - Ear discomfort [Unknown]
  - Device delivery system issue [Unknown]
  - Device operational issue [Unknown]
  - Drug delivery system issue [Unknown]
  - Device defective [Unknown]
  - Off label use [Unknown]
